FAERS Safety Report 8304317-X (Version None)
Quarter: 2012Q2

REPORT INFORMATION
  Report Type: 
  Country: None (occurrence: None)
  Receive Date: 20120423
  Receipt Date: 20120423
  Transmission Date: 20120825
  Serious: Yes (Other)
  Sender: FDA-Public Use
  Company Number: None

PATIENT
  Age: 45 Year
  Sex: Female
  Weight: 90.718 kg

DRUGS (1)
  1. LEVOTHYROXINE SODIUM [Suspect]
     Indication: HYPOTHYROIDISM
     Dosage: 1 TABLET
     Route: 048
     Dates: start: 20100825, end: 20110725

REACTIONS (7)
  - COGNITIVE DISORDER [None]
  - PARAESTHESIA [None]
  - FEAR [None]
  - INAPPROPRIATE SCHEDULE OF DRUG ADMINISTRATION [None]
  - HYPOAESTHESIA [None]
  - UNDERDOSE [None]
  - MEMORY IMPAIRMENT [None]
